FAERS Safety Report 5273354-4 (Version None)
Quarter: 2007Q1

REPORT INFORMATION
  Report Type: 
  Country: None (occurrence: None)
  Receive Date: 20070319
  Receipt Date: 20070302
  Transmission Date: 20070707
  Serious: Yes (Death, Hospitalization)
  Sender: FDA-Public Use
  Company Number: 238242

PATIENT
  Age: 30 Year
  Sex: Female
  Weight: 79.5 kg

DRUGS (8)
  1. AVASTIN [Suspect]
     Indication: COLORECTAL CANCER METASTATIC
     Dosage: 590 MG, INTRAVENOUS
     Route: 042
     Dates: start: 20050318, end: 20050617
  2. CAPECITABINE (CAPECITABINE) [Suspect]
     Indication: COLORECTAL CANCER METASTATIC
     Dosage: ORAL
     Route: 048
     Dates: start: 20050318, end: 20050617
  3. OXALIPLATIN [Suspect]
     Indication: COLORECTAL CANCER METASTATIC
     Dosage: 240 MG, INTRAVENOUS
     Route: 042
     Dates: start: 20050318, end: 20050617
  4. ONDANSETRON HCL [Concomitant]
  5. DEXAMETHASONE TAB [Concomitant]
  6. OMEPRAZOLE [Concomitant]
  7. MAGNESIUM SULFATE [Concomitant]
  8. CALCIUM CARBONATE (CALCIUM CARBONATE) [Concomitant]

REACTIONS (3)
  - COLORECTAL CANCER METASTATIC [None]
  - LUNG DISORDER [None]
  - MALIGNANT NEOPLASM PROGRESSION [None]
